FAERS Safety Report 10412828 (Version 1)
Quarter: 2014Q2

REPORT INFORMATION
  Report Type: Spontaneous
  Country: US (occurrence: None)
  Receive Date: 20140604
  Receipt Date: 20140604
  Transmission Date: 20141212
  Serious: Yes (Hospitalization)
  Sender: FDA-Public Use
  Company Number: 20120716CINRY3581

PATIENT
  Age: 47 Year
  Sex: 0

DRUGS (2)
  1. CINRYZE [Suspect]
     Indication: HEREDITARY ANGIOEDEMA
     Dosage: (1000 UNIT, EVERY 3-4 DAYS),INTRAVENOUS ?
     Route: 042
     Dates: end: 201206
  2. CINRYZE [Suspect]
     Indication: PROPHYLAXIS
     Dosage: (1000 UNIT, EVERY 3-4 DAYS),INTRAVENOUS ?
     Route: 042
     Dates: end: 201206

REACTIONS (2)
  - Hereditary angioedema [None]
  - Off label use [None]
